FAERS Safety Report 12652166 (Version 1)
Quarter: 2016Q3

REPORT INFORMATION
  Report Type: Other
  Country: CA (occurrence: CA)
  Receive Date: 20160815
  Receipt Date: 20160815
  Transmission Date: 20161109
  Serious: Yes (Death, Other)
  Sender: FDA-Public Use
  Company Number: CA-APOTEX-2016AP010315

PATIENT
  Age: 60 Year
  Sex: Male

DRUGS (1)
  1. APO-AMLODIPINE [Suspect]
     Active Substance: AMLODIPINE BESYLATE
     Indication: HYPERTENSION
     Route: 065

REACTIONS (3)
  - Hypotension [Fatal]
  - Drug level above therapeutic [Fatal]
  - Arrhythmia [Fatal]
